FAERS Safety Report 21909604 (Version 1)
Quarter: 2023Q1

REPORT INFORMATION
  Report Type: Spontaneous
  Country: GB (occurrence: GB)
  Receive Date: 20230125
  Receipt Date: 20230125
  Transmission Date: 20230418
  Serious: Yes (Disabling, Other)
  Sender: FDA-Public Use
  Company Number: GB-MHRA-MED-202301152250532490-VYFNW

PATIENT
  Age: 12 Year
  Sex: Male

DRUGS (1)
  1. PHENYTOIN [Suspect]
     Active Substance: PHENYTOIN
     Indication: Generalised tonic-clonic seizure
     Route: 065
     Dates: start: 2017, end: 2019

REACTIONS (2)
  - Cerebellar atrophy [Not Recovered/Not Resolved]
  - Gingival swelling [Recovered/Resolved]
